FAERS Safety Report 5714695-3 (Version None)
Quarter: 2008Q2

REPORT INFORMATION
  Report Type: 
  Country: None (occurrence: None)
  Receive Date: 20080423
  Receipt Date: 20080414
  Transmission Date: 20081010
  Serious: Yes (Hospitalization, Other)
  Sender: FDA-Public Use
  Company Number: US-MERCK-0705USA05335

PATIENT
  Age: 54 Year
  Sex: Male

DRUGS (2)
  1. FOSAMAX [Suspect]
     Indication: OSTEOPOROSIS
     Route: 048
     Dates: start: 20000401, end: 20060501
  2. NITROGLYCERIN [Concomitant]
     Indication: CHEST PAIN
     Route: 065
     Dates: start: 19890101

REACTIONS (15)
  - ANXIETY [None]
  - ARTHRALGIA [None]
  - DEPRESSION [None]
  - HYPERCHLORHYDRIA [None]
  - HYPERTENSION [None]
  - INJURY [None]
  - MICTURITION URGENCY [None]
  - MUSCLE SPASMS [None]
  - OSTEONECROSIS [None]
  - PANCYTOPENIA [None]
  - RHEUMATOID ARTHRITIS [None]
  - SLEEP DISORDER [None]
  - STRESS [None]
  - THROAT CANCER [None]
  - TOOTH LOSS [None]
